FAERS Safety Report 18322433 (Version 6)
Quarter: 2025Q3

REPORT INFORMATION
  Report Type: Spontaneous
  Country: EU (occurrence: EU)
  Receive Date: 20200928
  Receipt Date: 20250806
  Transmission Date: 20251021
  Serious: Yes (Hospitalization, Other)
  Sender: JOHNSON AND JOHNSON
  Company Number: EU-TEVA-2020-IT-1824630

PATIENT
  Age: 43 Year
  Sex: Female

DRUGS (32)
  1. TOPIRAMATE [Suspect]
     Active Substance: TOPIRAMATE
     Indication: Headache
     Route: 065
  2. FENTANYL [Suspect]
     Active Substance: FENTANYL
     Indication: Headache
     Route: 065
  3. LANSOPRAZOLE [Suspect]
     Active Substance: LANSOPRAZOLE
     Indication: Product used for unknown indication
     Route: 065
  4. ACETAMINOPHEN [Suspect]
     Active Substance: ACETAMINOPHEN
     Indication: Headache
     Route: 065
  5. INDOMETACIN MEGLUMINE [Suspect]
     Active Substance: INDOMETACIN MEGLUMINE
     Indication: Headache
     Dosage: 100 MILLIGRAM, ONCE A DAY
     Route: 065
  6. INDOMETACIN MEGLUMINE [Suspect]
     Active Substance: INDOMETACIN MEGLUMINE
     Route: 065
  7. INDOMETACIN MEGLUMINE [Suspect]
     Active Substance: INDOMETACIN MEGLUMINE
     Dosage: 100 MILLIGRAM, ONCE A DAY
     Route: 065
  8. INDOMETACIN MEGLUMINE [Suspect]
     Active Substance: INDOMETACIN MEGLUMINE
     Route: 065
  9. INDOMETACIN MEGLUMINE [Suspect]
     Active Substance: INDOMETACIN MEGLUMINE
     Dosage: 50 MILLIGRAM UP TO BID, DURING THE LAST HOSPITALIZATION
     Route: 065
  10. INDOMETACIN MEGLUMINE [Suspect]
     Active Substance: INDOMETACIN MEGLUMINE
     Route: 065
  11. METAMIZOLE [Suspect]
     Active Substance: METAMIZOLE
     Indication: Headache
     Route: 065
  12. METAMIZOLE [Suspect]
     Active Substance: METAMIZOLE
     Route: 065
  13. MORPHINE [Suspect]
     Active Substance: MORPHINE
     Indication: Headache
     Route: 065
  14. MORPHINE [Suspect]
     Active Substance: MORPHINE
     Route: 065
  15. MORPHINE [Suspect]
     Active Substance: MORPHINE
     Route: 065
  16. MORPHINE [Suspect]
     Active Substance: MORPHINE
     Route: 065
  17. MORPHINE [Suspect]
     Active Substance: MORPHINE
     Route: 065
  18. NOVALGINA [Suspect]
     Active Substance: ACETAMINOPHEN\CAFFEINE
     Indication: Headache
     Route: 065
  19. NOVALGINA [Suspect]
     Active Substance: ACETAMINOPHEN\CAFFEINE
     Route: 065
  20. CLOMIPRAMINE [Suspect]
     Active Substance: CLOMIPRAMINE
     Indication: Headache
     Route: 065
  21. CLOMIPRAMINE [Suspect]
     Active Substance: CLOMIPRAMINE
     Route: 065
  22. METHADONE [Suspect]
     Active Substance: METHADONE HYDROCHLORIDE
     Indication: Headache
     Route: 065
  23. METHADONE [Suspect]
     Active Substance: METHADONE HYDROCHLORIDE
     Route: 065
  24. ACETAMINOPHEN\CODEINE PHOSPHATE [Suspect]
     Active Substance: ACETAMINOPHEN\CODEINE PHOSPHATE
     Indication: Headache
     Route: 065
  25. ACETAMINOPHEN\CODEINE PHOSPHATE [Suspect]
     Active Substance: ACETAMINOPHEN\CODEINE PHOSPHATE
     Dosage: UP TO 20 TABLETS DAILY AT THE AGE OF 33-34 YEARS
     Route: 065
  26. ACETAMINOPHEN\CODEINE PHOSPHATE [Suspect]
     Active Substance: ACETAMINOPHEN\CODEINE PHOSPHATE
     Dosage: 20 DOSAGE FORM, ONCE A DAY
     Route: 065
  27. ACETAMINOPHEN\CODEINE PHOSPHATE [Suspect]
     Active Substance: ACETAMINOPHEN\CODEINE PHOSPHATE
     Route: 065
  28. OXYCODONE [Suspect]
     Active Substance: OXYCODONE
     Indication: Headache
     Route: 065
  29. OXYCODONE [Suspect]
     Active Substance: OXYCODONE
     Dosage: UP TO 40 TABLETS DAILY AT THE AGE OF 35 YEARS
     Route: 065
  30. OXYCODONE [Suspect]
     Active Substance: OXYCODONE
     Dosage: 40 DOSAGE FORM, DAILY
     Route: 065
  31. OXYCODONE [Suspect]
     Active Substance: OXYCODONE
     Route: 065
  32. MEGLUMINE [Suspect]
     Active Substance: MEGLUMINE
     Indication: Headache
     Route: 030

REACTIONS (7)
  - Gastroduodenal ulcer [Unknown]
  - Gastric haemorrhage [Unknown]
  - Drug abuse [Recovered/Resolved]
  - Duodenal ulcer [Unknown]
  - Gastric ulcer [Unknown]
  - Intentional product misuse [Unknown]
  - Intentional overdose [Unknown]
